FAERS Safety Report 11337126 (Version 2)
Quarter: 2015Q3

REPORT INFORMATION
  Report Type: Report from Study
  Country: AR (occurrence: AR)
  Receive Date: 20150804
  Receipt Date: 20150819
  Transmission Date: 20151125
  Serious: Yes (Other)
  Sender: FDA-Public Use
  Company Number: PHHY2015AR091636

PATIENT
  Sex: Male

DRUGS (3)
  1. PREGABALIN. [Concomitant]
     Active Substance: PREGABALIN
     Indication: PRODUCT USED FOR UNKNOWN INDICATION
     Route: 065
  2. GABAPENTIN. [Concomitant]
     Active Substance: GABAPENTIN
     Indication: PRODUCT USED FOR UNKNOWN INDICATION
     Dosage: 300 MG, UNK
     Route: 065
  3. DIOVAN D [Suspect]
     Active Substance: HYDROCHLOROTHIAZIDE\VALSARTAN
     Indication: HYPERTENSION
     Dosage: 160 OT, UNK
     Route: 065

REACTIONS (8)
  - Bronchitis [Recovering/Resolving]
  - Cough [Unknown]
  - Blood pressure increased [Recovered/Resolved]
  - Emotional disorder [Recovering/Resolving]
  - Blood pressure inadequately controlled [Recovering/Resolving]
  - Chronic obstructive pulmonary disease [Recovering/Resolving]
  - Weight increased [Unknown]
  - Sneezing [Unknown]

NARRATIVE: CASE EVENT DATE: 2013
